FAERS Safety Report 8102658-2 (Version None)
Quarter: 2012Q1

REPORT INFORMATION
  Report Type: 
  Country: None (occurrence: None)
  Receive Date: 20120201
  Receipt Date: 20120123
  Transmission Date: 20120608
  Serious: Yes (Other)
  Sender: FDA-Public Use
  Company Number: US-BAYER-201017368NA

PATIENT
  Age: 43 Year
  Sex: Female

DRUGS (2)
  1. YASMIN [Suspect]
     Dosage: UNK
     Dates: start: 20061201, end: 20091001
  2. YAZ [Suspect]
     Dosage: UNK UNK, UNK
     Route: 048
     Dates: start: 20061201, end: 20091001

REACTIONS (7)
  - PAIN [None]
  - EMOTIONAL DISTRESS [None]
  - FEAR [None]
  - INJURY [None]
  - PSYCHOLOGICAL TRAUMA [None]
  - ANXIETY [None]
  - CHOLELITHIASIS [None]
